FAERS Safety Report 5767852-4 (Version None)
Quarter: 2008Q2

REPORT INFORMATION
  Report Type: 
  Country: None (occurrence: None)
  Receive Date: 20080612
  Receipt Date: 20080604
  Transmission Date: 20081010
  Serious: Yes (Other)
  Sender: FDA-Public Use
  Company Number: PHHY2008JP09889

PATIENT

DRUGS (6)
  1. ZOMETA [Suspect]
     Indication: BONE LESION
     Dosage: 4 MG, QMO
     Route: 042
     Dates: start: 20070518, end: 20080514
  2. NAVELBINE [Concomitant]
     Indication: BREAST CANCER
     Dosage: 40 MG, UNK
     Route: 042
     Dates: start: 20070518, end: 20070629
  3. CAMPTO [Concomitant]
     Indication: BREAST CANCER
     Dosage: 100 MG, UNK
     Route: 042
     Dates: start: 20071122, end: 20080509
  4. TS 1 [Concomitant]
     Indication: BREAST CANCER
     Dosage: UNK
     Route: 048
     Dates: start: 20070713, end: 20070920
  5. LOXONIN [Concomitant]
     Indication: TUMOUR PAIN
     Dosage: UNK
     Route: 048
     Dates: start: 20070518, end: 20080517
  6. MORPHINE [Concomitant]
     Indication: TUMOUR PAIN
     Dosage: UNK
     Route: 048
     Dates: start: 20071026, end: 20080517

REACTIONS (1)
  - OSTEONECROSIS [None]
